FAERS Safety Report 7156543-3 (Version None)
Quarter: 2010Q4

REPORT INFORMATION
  Report Type: 
  Country: None (occurrence: None)
  Receive Date: 20101214
  Receipt Date: 20091113
  Transmission Date: 20110411
  Serious: No
  Sender: FDA-Public Use
  Company Number: US-ASTRAZENECA-2009SE26376

PATIENT
  Age: 84 Year
  Sex: Female
  Weight: 63.5 kg

DRUGS (3)
  1. CRESTOR [Suspect]
     Route: 048
  2. ATENOLOL [Concomitant]
  3. HYDROCHLOROTHYAZIDE [Concomitant]

REACTIONS (1)
  - ARTHROPATHY [None]
